FAERS Safety Report 25300607 (Version 2)
Quarter: 2025Q3

REPORT INFORMATION
  Report Type: Spontaneous
  Country: CA (occurrence: CA)
  Receive Date: 20250512
  Receipt Date: 20250708
  Transmission Date: 20251021
  Serious: Yes (Other)
  Sender: PFIZER
  Company Number: CA-PFIZER INC-202500071085

PATIENT
  Age: 53 Year
  Sex: Male

DRUGS (3)
  1. METHOTREXATE SODIUM [Suspect]
     Active Substance: METHOTREXATE SODIUM
     Dates: start: 2023, end: 202412
  2. ARAVA [Concomitant]
     Active Substance: LEFLUNOMIDE
     Dates: start: 2023
  3. RINVOQ [Concomitant]
     Active Substance: UPADACITINIB
     Dates: start: 2023

REACTIONS (4)
  - Interstitial lung disease [Unknown]
  - Rheumatoid arthritis [Unknown]
  - Drug ineffective [Unknown]
  - Cellulitis [Unknown]
